FAERS Safety Report 9955215 (Version 2)
Quarter: 2014Q2

REPORT INFORMATION
  Report Type: Spontaneous
  Country: US (occurrence: US)
  Receive Date: 20140304
  Receipt Date: 20140411
  Transmission Date: 20141212
  Serious: Yes (Other)
  Sender: FDA-Public Use
  Company Number: US-PFIZER INC-2014058476

PATIENT
  Age: 54 Year
  Sex: Male
  Weight: 77.1 kg

DRUGS (1)
  1. LYRICA [Suspect]
     Indication: ARTHRITIS
     Dosage: MIDDLE DOSE, 3X/DAY
     Dates: start: 2013

REACTIONS (1)
  - Multiple sclerosis [Unknown]
